FAERS Safety Report 8439452-9 (Version None)
Quarter: 2012Q2

REPORT INFORMATION
  Report Type: 
  Country: None (occurrence: None)
  Receive Date: 20120615
  Receipt Date: 20120605
  Transmission Date: 20120825
  Serious: Yes (Hospitalization)
  Sender: FDA-Public Use
  Company Number: US-PFIZER INC-2012133985

PATIENT
  Sex: Female
  Weight: 49 kg

DRUGS (10)
  1. VITAMIN B6 [Concomitant]
     Indication: OSTEOPOROSIS
     Dosage: UNK
     Route: 048
  2. ONDANSETRON [Concomitant]
     Indication: NAUSEA
     Dosage: 8 MG, AS NEEDED
     Route: 048
     Dates: start: 20120101
  3. IMODIUM [Concomitant]
     Indication: DIARRHOEA
     Dosage: UNK
     Route: 048
     Dates: start: 20120320
  4. PF-05212384 [Suspect]
     Indication: PANCREATIC CARCINOMA
     Dosage: 130 MG, WEEKLY (DAYS 2,9,16,23)
     Route: 042
     Dates: start: 20120320
  5. IRINOTECAN HCL [Suspect]
     Indication: PANCREATIC CARCINOMA
     Dosage: 150 MG, EVERY 2 WEEKS (DAYS 1 AND 15)
     Route: 042
     Dates: start: 20120319
  6. PREDNISOLONE [Concomitant]
     Indication: EYE INFLAMMATION
     Dosage: 1 %, 4X/DAY
     Route: 047
     Dates: start: 20090101
  7. SIMVASTATIN [Concomitant]
     Indication: BLOOD CHOLESTEROL INCREASED
     Dosage: 40 MG, 1X/DAY
     Route: 048
  8. CALCIUM W/COLECALCIFEROL [Concomitant]
     Indication: OSTEOPOROSIS
     Dosage: UNK,UNK, 1X/DAY
     Route: 048
  9. ALENDRONIC ACID [Concomitant]
     Indication: OSTEOPOROSIS
     Dosage: 70 MG, WEEKLY
     Dates: start: 20090101
  10. OLOPATADINE [Concomitant]
     Indication: CATARACT
     Dosage: 0.1 %, 4X/DAY
     Route: 047

REACTIONS (1)
  - ESCHERICHIA BACTERAEMIA [None]
